FAERS Safety Report 8908355 (Version 1)
Quarter: 2012Q4

REPORT INFORMATION
  Report Type: 
  Country: US (occurrence: US)
  Receive Date: 20121114
  Receipt Date: 20121114
  Transmission Date: 20130627
  Serious: No
  Sender: FDA-Public Use
  Company Number: US-ASTRAZENECA-2012SE84574

PATIENT
  Age: 42 Year
  Sex: Female

DRUGS (2)
  1. SYMBICORT PMDI [Suspect]
     Indication: ASTHMA
     Route: 055
     Dates: start: 201206, end: 20121105
  2. VENTOLIN [Concomitant]
     Indication: ASTHMA

REACTIONS (3)
  - Pyrexia [Unknown]
  - Ocular hyperaemia [Unknown]
  - Eye irritation [Unknown]
